FAERS Safety Report 9474773 (Version 1)
Quarter: 2013Q3

REPORT INFORMATION
  Report Type: Spontaneous
  Country: GB (occurrence: GB)
  Receive Date: 20130823
  Receipt Date: 20130823
  Transmission Date: 20140515
  Serious: Yes (Other)
  Sender: FDA-Public Use
  Company Number: GB-BAXTER-2013BAX033322

PATIENT
  Age: 79 Year
  Sex: Male

DRUGS (1)
  1. KIOVIG 100 MG/ML SOLUTION FOR INFUSION [Suspect]
     Indication: NEUROMYELITIS OPTICA
     Route: 042

REACTIONS (2)
  - Myocardial infarction [Unknown]
  - Lower respiratory tract infection [Unknown]
